FAERS Safety Report 16360761 (Version 2)
Quarter: 2019Q2

REPORT INFORMATION
  Report Type: Report from Study
  Country: JP (occurrence: JP)
  Receive Date: 20190528
  Receipt Date: 20190530
  Transmission Date: 20190711
  Serious: Yes (Death, Hospitalization, Other)
  Sender: FDA-Public Use
  Company Number: JP-TAKEDA-2019TUS010654

PATIENT
  Age: 85 Year
  Sex: Female
  Weight: 42 kg

DRUGS (7)
  1. BAYASPIRIN [Concomitant]
     Active Substance: ASPIRIN
     Indication: PROPHYLAXIS
     Dosage: UNK
     Route: 065
     Dates: start: 20170322, end: 20180517
  2. PONATINIB [Suspect]
     Active Substance: PONATINIB
     Dosage: UNK UNK, QOD
     Route: 048
     Dates: start: 20170920, end: 20180316
  3. ONCOVIN [Concomitant]
     Active Substance: VINCRISTINE SULFATE
     Indication: ACUTE LYMPHOCYTIC LEUKAEMIA
     Dosage: UNK
     Route: 065
     Dates: start: 20151127, end: 20180302
  4. PONATINIB [Suspect]
     Active Substance: PONATINIB
     Dosage: 30 MILLIGRAM, QD
     Route: 048
     Dates: start: 20170725, end: 20170919
  5. PREDNISOLONE. [Concomitant]
     Active Substance: PREDNISOLONE
     Indication: PRODUCT USED FOR UNKNOWN INDICATION
     Dosage: UNK
     Route: 065
     Dates: end: 20180302
  6. PONATINIB [Suspect]
     Active Substance: PONATINIB
     Indication: ACUTE LYMPHOCYTIC LEUKAEMIA
     Dosage: 15 MILLIGRAM, QD
     Route: 048
     Dates: start: 20170322, end: 20170724
  7. PONATINIB [Suspect]
     Active Substance: PONATINIB
     Dosage: 45 MILLIGRAM, QD
     Route: 048
     Dates: start: 20180321, end: 20180517

REACTIONS (3)
  - Femur fracture [Recovering/Resolving]
  - Acute lymphocytic leukaemia [Fatal]
  - Fluid retention [Recovering/Resolving]

NARRATIVE: CASE EVENT DATE: 20180310
